FAERS Safety Report 20706907 (Version 2)
Quarter: 2022Q2

REPORT INFORMATION
  Report Type: Report from Study
  Country: BR (occurrence: BR)
  Receive Date: 20220413
  Receipt Date: 20220420
  Transmission Date: 20220721
  Serious: Yes (Other)
  Sender: FDA-Public Use
  Company Number: BR-NOVARTISPH-NVSC2022BR055163

PATIENT
  Age: 68 Year
  Sex: Female
  Weight: 46.8 kg

DRUGS (3)
  1. PIQRAY [Suspect]
     Active Substance: ALPELISIB
     Indication: Product used for unknown indication
     Dosage: 250 MG
     Route: 065
     Dates: end: 20220317
  2. PIQRAY [Suspect]
     Active Substance: ALPELISIB
     Dosage: 300 MG, QD (LAST DOSE RECIEVED ON 02 MAR 2022)
     Route: 065
     Dates: start: 20220302
  3. AMLODIPINE [Suspect]
     Active Substance: AMLODIPINE BESYLATE
     Indication: Blood pressure abnormal
     Dosage: UNK
     Route: 065

REACTIONS (30)
  - Cardiac failure [Not Recovered/Not Resolved]
  - Frequent bowel movements [Recovered/Resolved]
  - Abnormal faeces [Recovered/Resolved]
  - Blood glucose increased [Recovered/Resolved]
  - Pollakiuria [Not Recovered/Not Resolved]
  - Malaise [Recovered/Resolved]
  - Blood glucose increased [Unknown]
  - Hypertension [Not Recovered/Not Resolved]
  - Decreased appetite [Not Recovered/Not Resolved]
  - Hypogeusia [Not Recovered/Not Resolved]
  - Asthenia [Recovered/Resolved]
  - Dry mouth [Recovered/Resolved]
  - Weight decreased [Not Recovered/Not Resolved]
  - Erythema [Unknown]
  - Pruritus [Unknown]
  - Fatigue [Not Recovered/Not Resolved]
  - Thirst [Unknown]
  - Blood glucose fluctuation [Recovered/Resolved]
  - Mucosal inflammation [Recovered/Resolved]
  - Blood pressure abnormal [Recovered/Resolved]
  - Low density lipoprotein increased [Recovering/Resolving]
  - Heart rate increased [Recovering/Resolving]
  - Body temperature decreased [Recovering/Resolving]
  - Aphthous ulcer [Recovered/Resolved]
  - Condition aggravated [Recovered/Resolved]
  - Blood glucose fluctuation [Recovered/Resolved]
  - Insomnia [Recovered/Resolved]
  - Dry eye [Unknown]
  - Alanine aminotransferase increased [Unknown]
  - Aspartate aminotransferase increased [Unknown]

NARRATIVE: CASE EVENT DATE: 20220302
